FAERS Safety Report 8125014-X (Version None)
Quarter: 2012Q1

REPORT INFORMATION
  Report Type: 
  Country: None (occurrence: None)
  Receive Date: 20120209
  Receipt Date: 20120201
  Transmission Date: 20120608
  Serious: Yes (Death, Hospitalization)
  Sender: FDA-Public Use
  Company Number: US-ACTELION-A-NJ2012-60278

PATIENT

DRUGS (3)
  1. OXYGEN [Concomitant]
  2. TRACLEER [Suspect]
     Dosage: 62.5 MG, BID
     Route: 048
     Dates: start: 20100824, end: 20100929
  3. TRACLEER [Suspect]
     Indication: PULMONARY ARTERIAL HYPERTENSION
     Dosage: 125 MG, BID
     Route: 048
     Dates: start: 20100930, end: 20120102

REACTIONS (4)
  - TRANSFUSION [None]
  - ANAEMIA [None]
  - IDIOPATHIC PULMONARY FIBROSIS [None]
  - PULMONARY HYPERTENSION [None]
